FAERS Safety Report 22116603 (Version 6)
Quarter: 2023Q4

REPORT INFORMATION
  Report Type: Spontaneous
  Country: US (occurrence: US)
  Receive Date: 20230320
  Receipt Date: 20231009
  Transmission Date: 20240110
  Serious: Yes (Other)
  Sender: FDA-Public Use
  Company Number: US-PFIZER INC-PV202300051194

PATIENT
  Age: 46 Year
  Sex: Female

DRUGS (1)
  1. NIVESTYM [Suspect]
     Active Substance: FILGRASTIM-AAFI
     Dosage: UNK

REACTIONS (4)
  - Drain removal [Unknown]
  - Procedural pain [Unknown]
  - Loss of personal independence in daily activities [Unknown]
  - Feeling abnormal [Unknown]
